FAERS Safety Report 9456738 (Version 2)
Quarter: 2013Q3

REPORT INFORMATION
  Report Type: Spontaneous
  Country: US (occurrence: US)
  Receive Date: 20130813
  Receipt Date: 20130829
  Transmission Date: 20140515
  Serious: Yes (Other)
  Sender: FDA-Public Use
  Company Number: US-PFIZER INC-2013233126

PATIENT
  Age: 64 Year
  Sex: Female
  Weight: 90.7 kg

DRUGS (2)
  1. PREPARATION H HEMORRHOIDAL SUPPOSITORIES [Suspect]
     Indication: HAEMORRHOIDS
     Dosage: UNK, 2X/DAY
     Dates: start: 2012
  2. PREPARATION H HEMORRHOIDAL SUPPOSITORIES [Suspect]
     Indication: PRURITUS

REACTIONS (3)
  - Rectal haemorrhage [Unknown]
  - Diverticulum [Unknown]
  - Incorrect product storage [Unknown]
